FAERS Safety Report 12683679 (Version 1)
Quarter: 2016Q3

REPORT INFORMATION
  Report Type: Spontaneous
  Country: US (occurrence: None)
  Receive Date: 20160824
  Receipt Date: 20160824
  Transmission Date: 20161109
  Serious: Yes (Life-Threatening, Hospitalization)
  Sender: FDA-Public Use
  Company Number: None

PATIENT
  Age: 77 Year
  Sex: Female
  Weight: 122.5 kg

DRUGS (17)
  1. ELIQUIS [Suspect]
     Active Substance: APIXABAN
     Indication: CEREBROVASCULAR ACCIDENT
     Route: 048
  2. ZOCOR [Concomitant]
     Active Substance: SIMVASTATIN
  3. VIIBRYD [Concomitant]
     Active Substance: VILAZODONE HYDROCHLORIDE
  4. VITAMIN B12 [Concomitant]
     Active Substance: CYANOCOBALAMIN
  5. MG OXIDE [Concomitant]
  6. BUMEX [Concomitant]
     Active Substance: BUMETANIDE
  7. VITAMIN D3 [Suspect]
     Active Substance: CHOLECALCIFEROL
  8. SUNTHROID [Concomitant]
  9. KCL [Concomitant]
     Active Substance: POTASSIUM CHLORIDE
  10. ELIQUIS [Suspect]
     Active Substance: APIXABAN
     Indication: ATRIAL FIBRILLATION
     Route: 048
  11. ELIQUIS [Suspect]
     Active Substance: APIXABAN
     Indication: CATHETERISATION CARDIAC
     Route: 048
  12. DIOVAN [Concomitant]
     Active Substance: VALSARTAN
  13. ACIDOPHILUS [Concomitant]
     Active Substance: LACTOBACILLUS ACIDOPHILUS
  14. ELIQUIS [Suspect]
     Active Substance: APIXABAN
     Indication: CORONARY ARTERY STENOSIS
     Route: 048
  15. BYSTOLIC [Concomitant]
     Active Substance: NEBIVOLOL HYDROCHLORIDE
  16. GLUCOTROL [Concomitant]
     Active Substance: GLIPIZIDE
  17. RESTORIL [Concomitant]
     Active Substance: TEMAZEPAM

REACTIONS (7)
  - Fall [None]
  - Splenic injury [None]
  - Hepatic cirrhosis [None]
  - Head injury [None]
  - Abdominal injury [None]
  - Peritoneal haemorrhage [None]
  - Ascites [None]

NARRATIVE: CASE EVENT DATE: 20160812
